FAERS Safety Report 16399000 (Version 1)
Quarter: 2019Q2

REPORT INFORMATION
  Report Type: Spontaneous
  Country: US (occurrence: US)
  Receive Date: 20190606
  Receipt Date: 20190606
  Transmission Date: 20190711
  Serious: Yes (Other)
  Sender: FDA-Public Use
  Company Number: US-MYLANLABS-2019M1053432

PATIENT
  Age: 56 Year
  Sex: Male

DRUGS (1)
  1. GEMCITABINE [Suspect]
     Active Substance: GEMCITABINE\GEMCITABINE HYDROCHLORIDE
     Indication: PANCREATIC CARCINOMA
     Route: 065

REACTIONS (8)
  - Renal injury [Unknown]
  - Thrombotic microangiopathy [Unknown]
  - Dyspnoea exertional [Unknown]
  - Tubulointerstitial nephritis [Unknown]
  - Abdominal distension [Unknown]
  - Oedema [Unknown]
  - Anaemia [Unknown]
  - Renal tubular necrosis [Unknown]
